FAERS Safety Report 5363033-7 (Version None)
Quarter: 2007Q2

REPORT INFORMATION
  Report Type: 
  Country: None (occurrence: None)
  Receive Date: 20070618
  Receipt Date: 20070601
  Transmission Date: 20071010
  Serious: Yes (Other)
  Sender: FDA-Public Use
  Company Number: 8024388

PATIENT
  Age: 54 Year
  Sex: Female

DRUGS (2)
  1. METADATE CD [Suspect]
     Indication: ATTENTION DEFICIT/HYPERACTIVITY DISORDER
     Dosage: 30 MG/ D PO
     Route: 048
     Dates: start: 20060301, end: 20070604
  2. NEXIUM [Concomitant]

REACTIONS (1)
  - ATRIAL FIBRILLATION [None]
